FAERS Safety Report 6354473-8 (Version None)
Quarter: 2009Q3

REPORT INFORMATION
  Report Type: 
  Country: None (occurrence: None)
  Receive Date: 20090914
  Receipt Date: 20090904
  Transmission Date: 20100115
  Serious: Yes (Death, Hospitalization)
  Sender: FDA-Public Use
  Company Number: GB-NOVOPROD-278766

PATIENT
  Age: 18 Month
  Sex: Female
  Weight: 7.3 kg

DRUGS (2)
  1. NOVOSEVEN [Suspect]
     Indication: HAEMORRHAGE
     Dosage: 90 UG/KG, UNK
     Route: 042
     Dates: start: 20060517
  2. TRASYLOL [Concomitant]
     Dosage: 7 ML/HR
     Route: 042

REACTIONS (2)
  - INTRACARDIAC THROMBUS [None]
  - MEDICAL DEVICE COMPLICATION [None]
